FAERS Safety Report 5684240-X (Version None)
Quarter: 2008Q1

REPORT INFORMATION
  Report Type: 
  Country: None (occurrence: None)
  Receive Date: 20080328
  Receipt Date: 20071201
  Transmission Date: 20080703
  Serious: No
  Sender: FDA-Public Use
  Company Number: US-AMGEN-KDL254901

PATIENT
  Sex: Female

DRUGS (3)
  1. NEULASTA [Suspect]
     Indication: CHEMOTHERAPY
     Dates: start: 20070927
  2. ATACAND [Concomitant]
  3. AVANDAMET [Concomitant]

REACTIONS (1)
  - INJECTION SITE HAEMORRHAGE [None]
